FAERS Safety Report 8086362-5 (Version None)
Quarter: 2012Q1

REPORT INFORMATION
  Report Type: 
  Country: None (occurrence: None)
  Receive Date: 20120128
  Receipt Date: 20110421
  Transmission Date: 20120608
  Serious: No
  Sender: FDA-Public Use
  Company Number: US-ABBOTT-11P-163-0721956-00

PATIENT
  Sex: Female
  Weight: 59.02 kg

DRUGS (7)
  1. ENTOCORT EC [Concomitant]
     Indication: PRODUCT USED FOR UNKNOWN INDICATION
  2. PENTASA [Concomitant]
     Indication: CROHN'S DISEASE
  3. LEVOTHYROXINE SODIUM [Concomitant]
     Indication: THYROID DISORDER
  4. HYDROCODONE BITARTRATE [Concomitant]
     Indication: PAIN
     Dosage: AS REQUIRED
  5. NAPROSYN [Concomitant]
     Indication: PAIN
     Dosage: AS REQUIRED
  6. NAPROSYN [Concomitant]
     Indication: CROHN'S DISEASE
  7. HUMIRA [Suspect]
     Indication: CROHN'S DISEASE
     Dates: start: 20070101

REACTIONS (4)
  - VITAMIN D DECREASED [None]
  - PAIN IN EXTREMITY [None]
  - GAIT DISTURBANCE [None]
  - VITAMIN B12 DECREASED [None]
